FAERS Safety Report 23100779 (Version 1)
Quarter: 2023Q4

REPORT INFORMATION
  Report Type: Spontaneous
  Country: US (occurrence: None)
  Receive Date: 20231021
  Receipt Date: 20231021
  Transmission Date: 20240110
  Serious: Yes (Hospitalization)
  Sender: FDA-Public Use
  Company Number: None

PATIENT
  Age: 47 Year
  Sex: Female
  Weight: 79 kg

DRUGS (1)
  1. APIXABAN [Suspect]
     Active Substance: APIXABAN
     Dosage: FREQUENCY : TWICE A DAY;?
     Route: 048
     Dates: start: 20210701

REACTIONS (5)
  - Gastrointestinal haemorrhage [None]
  - Asthenia [None]
  - Intestinal gangrene [None]
  - Protein C deficiency [None]
  - Protein S deficiency [None]

NARRATIVE: CASE EVENT DATE: 20221003
